FAERS Safety Report 15698160 (Version 2)
Quarter: 2018Q4

REPORT INFORMATION
  Report Type: Spontaneous
  Country: CN (occurrence: CN)
  Receive Date: 20181207
  Receipt Date: 20181214
  Transmission Date: 20190205
  Serious: Yes (Other)
  Sender: FDA-Public Use
  Company Number: CN-ROCHE-2223738

PATIENT
  Age: 53 Year
  Sex: Male

DRUGS (19)
  1. CELLCEPT [Suspect]
     Active Substance: MYCOPHENOLATE MOFETIL\MYCOPHENOLATE MOFETIL HYDROCHLORIDE
     Dosage: 0.25 UNIT UNKNOWN
     Route: 065
     Dates: start: 20181121
  2. BASILIXIMAB [Suspect]
     Active Substance: BASILIXIMAB
     Route: 065
     Dates: start: 20181015, end: 20181015
  3. METHYLPREDNISOLONE SODIUM SUCCINATE. [Suspect]
     Active Substance: METHYLPREDNISOLONE SODIUM SUCCINATE
     Route: 065
  4. IMMUNE GLOBULIN NOS [Suspect]
     Active Substance: IMMUNE GLOBULIN NOS
     Indication: PRODUCT USED FOR UNKNOWN INDICATION
     Dosage: FOR 7 DAYS
     Route: 042
     Dates: start: 20181017
  5. URAPIDIL [Concomitant]
     Active Substance: URAPIDIL
     Indication: HYPOTENSION
     Route: 065
     Dates: start: 20181015
  6. PREDNISONE. [Suspect]
     Active Substance: PREDNISONE
     Indication: IMMUNOSUPPRESSION
     Dosage: STARTED AT 70MG, 5MG/DAY DECREMENT
     Route: 065
     Dates: start: 20181011
  7. LEVAMLODIPINE BESYLATE [Concomitant]
     Active Substance: LEVAMLODIPINE BESYLATE
     Indication: HYPOTENSION
     Route: 065
     Dates: start: 20181011, end: 20181016
  8. CELLCEPT [Suspect]
     Active Substance: MYCOPHENOLATE MOFETIL\MYCOPHENOLATE MOFETIL HYDROCHLORIDE
     Indication: IMMUNOSUPPRESSION
     Route: 065
     Dates: start: 20181011, end: 20181016
  9. TACROLIMUS. [Suspect]
     Active Substance: TACROLIMUS
     Indication: IMMUNOSUPPRESSION
     Route: 065
     Dates: start: 20181011, end: 20181016
  10. PRAZOSIN. [Concomitant]
     Active Substance: PRAZOSIN
     Indication: HYPOTENSION
     Route: 065
     Dates: start: 20181011, end: 20181016
  11. NICARDIPINE HYDROCHLORIDE. [Concomitant]
     Active Substance: NICARDIPINE HYDROCHLORIDE
     Indication: HYPOTENSION
     Route: 065
     Dates: start: 20181015
  12. METHYLPREDNISOLONE SODIUM SUCCINATE. [Suspect]
     Active Substance: METHYLPREDNISOLONE SODIUM SUCCINATE
     Indication: IMMUNOSUPPRESSION
     Dosage: FOR 3 DAYS
     Route: 065
     Dates: start: 20181011, end: 20181013
  13. MORPHINE [Concomitant]
     Active Substance: MORPHINE
     Indication: SEDATION
     Route: 065
     Dates: start: 20181016
  14. METHYLPREDNISOLONE SODIUM SUCCINATE. [Suspect]
     Active Substance: METHYLPREDNISOLONE SODIUM SUCCINATE
     Route: 065
     Dates: start: 20181017
  15. CELLCEPT [Suspect]
     Active Substance: MYCOPHENOLATE MOFETIL\MYCOPHENOLATE MOFETIL HYDROCHLORIDE
     Indication: IMMUNOSUPPRESSION
     Route: 065
     Dates: start: 20181017, end: 20181021
  16. PETHIDINE [Concomitant]
     Active Substance: MEPERIDINE
     Indication: SEDATION
     Route: 065
     Dates: start: 20181016
  17. BASILIXIMAB [Suspect]
     Active Substance: BASILIXIMAB
     Indication: IMMUNOSUPPRESSION
     Route: 065
     Dates: start: 20181011, end: 20181011
  18. DEXMEDETOMIDINE. [Concomitant]
     Active Substance: DEXMEDETOMIDINE
     Indication: SEDATION
     Route: 065
     Dates: start: 20181016
  19. NITROPRUSSIDE SODIUM [Concomitant]
     Indication: HYPOTENSION
     Route: 065
     Dates: start: 20181015

REACTIONS (12)
  - Pleural effusion [Unknown]
  - Nephropathy toxic [Unknown]
  - Pelvic fluid collection [Unknown]
  - Chest pain [Recovering/Resolving]
  - Aortic dissection [Unknown]
  - Therapeutic embolisation [Unknown]
  - Chest discomfort [Unknown]
  - Pain [Unknown]
  - Complications of transplanted kidney [Unknown]
  - Peripheral ischaemia [Unknown]
  - Ascites [Unknown]
  - Hypoaesthesia [Unknown]

NARRATIVE: CASE EVENT DATE: 20181015
